FAERS Safety Report 11088793 (Version 3)
Quarter: 2016Q3

REPORT INFORMATION
  Report Type: Spontaneous
  Country: US (occurrence: US)
  Receive Date: 20150504
  Receipt Date: 20160830
  Transmission Date: 20161109
  Serious: Yes (Other)
  Sender: FDA-Public Use
  Company Number: US-JNJFOC-20150500402

PATIENT
  Age: 19 Year
  Sex: Male

DRUGS (4)
  1. RISPERDAL [Suspect]
     Active Substance: RISPERIDONE
     Indication: TIC
     Route: 048
     Dates: start: 1999, end: 200001
  2. CLONIDINE. [Suspect]
     Active Substance: CLONIDINE
     Indication: PRODUCT USED FOR UNKNOWN INDICATION
     Route: 048
  3. RISPERDAL [Suspect]
     Active Substance: RISPERIDONE
     Indication: TIC
     Route: 048
     Dates: start: 1995, end: 1996
  4. NICOTINE. [Suspect]
     Active Substance: NICOTINE
     Indication: TIC
     Dosage: HALF OF A 7 MG DELIVERY PATCH TO BE APPLIED BY THE DAYTIME ONLY FOR THE WEEKDAYS.
     Route: 062

REACTIONS (9)
  - Off label use [Unknown]
  - Sedation [Unknown]
  - Snoring [Unknown]
  - Palpitations [Recovered/Resolved]
  - Tic [Recovering/Resolving]
  - Gynaecomastia [Recovering/Resolving]
  - Product use issue [Unknown]
  - Obesity [Unknown]
  - Enuresis [Unknown]

NARRATIVE: CASE EVENT DATE: 1995
